FAERS Safety Report 10169317 (Version 1)
Quarter: 2014Q2

REPORT INFORMATION
  Report Type: Spontaneous
  Country: US (occurrence: US)
  Receive Date: 20140513
  Receipt Date: 20140513
  Transmission Date: 20141212
  Serious: No
  Sender: FDA-Public Use
  Company Number: US-DRREDDYS-USA/USA/14/0039449

PATIENT
  Age: 52 Year
  Sex: Female
  Weight: 81.19 kg

DRUGS (4)
  1. ATORVASTATIN TABLETS 10MG, 20 MG + 40 MG (091650) [Suspect]
     Indication: BLOOD CHOLESTEROL INCREASED
     Route: 048
  2. OXYCODONE [Concomitant]
     Indication: PRODUCT USED FOR UNKNOWN INDICATION
     Route: 065
  3. MOTRIN [Concomitant]
     Indication: PRODUCT USED FOR UNKNOWN INDICATION
     Route: 065
  4. LATISSE [Concomitant]
     Indication: PRODUCT USED FOR UNKNOWN INDICATION
     Route: 065

REACTIONS (2)
  - Faecal incontinence [Recovered/Resolved]
  - Muscle spasms [Recovered/Resolved]
